FAERS Safety Report 8840747 (Version 1)
Quarter: 2012Q4

REPORT INFORMATION
  Report Type: 
  Country: US (occurrence: US)
  Receive Date: 20121015
  Receipt Date: 20121015
  Transmission Date: 20130627
  Serious: Yes (Death, Hospitalization, Other)
  Sender: FDA-Public Use
  Company Number: US-ELI_LILLY_AND_COMPANY-US201210003065

PATIENT
  Sex: Male

DRUGS (2)
  1. HUMULIN NPH [Suspect]
     Indication: TYPE 2 DIABETES MELLITUS
     Dosage: UNK
  2. LASIX [Concomitant]

REACTIONS (4)
  - Cardiac disorder [Fatal]
  - Renal disorder [Fatal]
  - Blood glucose increased [Unknown]
  - Oedema peripheral [Unknown]
